FAERS Safety Report 18709927 (Version 3)
Quarter: 2021Q1

REPORT INFORMATION
  Report Type: Report from Study
  Country: JP (occurrence: JP)
  Receive Date: 20210106
  Receipt Date: 20210115
  Transmission Date: 20210419
  Serious: Yes (Death)
  Sender: FDA-Public Use
  Company Number: JP-GILEAD-2021-0511568

PATIENT
  Age: 66 Year
  Sex: Male
  Weight: 103 kg

DRUGS (13)
  1. DEXAMETHASONE. [Concomitant]
     Active Substance: DEXAMETHASONE
     Indication: COVID-19
     Dosage: UNK
     Dates: start: 20201214, end: 20201222
  2. FENTANYL CITRATE. [Concomitant]
     Active Substance: FENTANYL CITRATE
     Indication: ANALGESIC THERAPY
     Dosage: UNK
     Route: 042
     Dates: start: 20201214, end: 20201223
  3. MULTAMIN [Concomitant]
     Active Substance: VITAMINS
     Indication: PARENTERAL NUTRITION
     Dosage: UNK
     Route: 050
     Dates: start: 20201218, end: 20201223
  4. ROCURONIUM BROMIDE. [Concomitant]
     Active Substance: ROCURONIUM BROMIDE
     Indication: MUSCLE RELAXANT THERAPY
     Dosage: UNK
     Route: 042
     Dates: start: 20201214, end: 20201215
  5. KIDMIN [Concomitant]
     Active Substance: AMINO ACIDS\ELECTROLYTES NOS
     Indication: PARENTERAL NUTRITION
     Dosage: UNK
     Route: 050
     Dates: start: 20201218, end: 20201223
  6. NAFAMOSTAT MESILATE [Concomitant]
     Active Substance: NAFAMOSTAT MESYLATE
     Indication: COVID-19
     Dosage: UNK
     Dates: start: 20201214, end: 20201222
  7. LANSOPRAZOLE. [Concomitant]
     Active Substance: LANSOPRAZOLE
     Indication: PROPHYLAXIS AGAINST GASTROINTESTINAL ULCER
     Dosage: UNK
     Route: 042
     Dates: start: 20201218, end: 20201223
  8. HICALIQ [Concomitant]
     Active Substance: CALCIUM GLUCONATE\DEXTROSE\MAGNESIUM SULFATE\POTASSIUM ACETATE\POTASSIUM PHOSPHATE, DIBASIC\ZINC SULFATE
     Indication: PARENTERAL NUTRITION
     Dosage: UNK
     Route: 050
     Dates: start: 20201218, end: 20201223
  9. REMDESIVIR. [Suspect]
     Active Substance: REMDESIVIR
     Indication: COVID-19
     Dosage: 200 MG, QD
     Route: 042
     Dates: start: 20201214, end: 20201214
  10. REMDESIVIR. [Suspect]
     Active Substance: REMDESIVIR
     Dosage: 100 MG, QD
     Route: 042
     Dates: start: 20201215, end: 20201222
  11. MIDAZOLAM. [Concomitant]
     Active Substance: MIDAZOLAM
     Indication: SEDATIVE THERAPY
     Dosage: UNK
     Route: 042
     Dates: start: 20201214, end: 20201223
  12. FULCALIQ [Concomitant]
     Active Substance: AMINO ACIDS\CARBOHYDRATES\ELECTROLYTES NOS\VITAMINS
     Indication: PARENTERAL NUTRITION
     Dosage: UNK
     Route: 050
     Dates: start: 20201214, end: 20201218
  13. ACTEMRA [Concomitant]
     Active Substance: TOCILIZUMAB
     Indication: COVID-19
     Dosage: UNK
     Dates: start: 20201214, end: 20201214

REACTIONS (2)
  - COVID-19 pneumonia [Fatal]
  - Disseminated intravascular coagulation [Fatal]

NARRATIVE: CASE EVENT DATE: 20201220
